FAERS Safety Report 10956751 (Version 1)
Quarter: 2015Q1

REPORT INFORMATION
  Report Type: Spontaneous
  Country: US (occurrence: US)
  Receive Date: 20150326
  Receipt Date: 20150326
  Transmission Date: 20150721
  Serious: No
  Sender: FDA-Public Use
  Company Number: US-MYLANLABS-2014S1017015

PATIENT
  Sex: Female
  Weight: 49.9 kg

DRUGS (3)
  1. AMBIEN [Concomitant]
     Active Substance: ZOLPIDEM TARTRATE
     Dosage: UNK
  2. EMSAM [Suspect]
     Active Substance: SELEGILINE
     Indication: DEPRESSION
     Dosage: 12 MG,QD
     Route: 062
     Dates: start: 201401, end: 201406
  3. EMSAM [Suspect]
     Active Substance: SELEGILINE
     Indication: DEPRESSION
     Dosage: 6 MG,QD
     Route: 062
     Dates: start: 201406

REACTIONS (3)
  - Fatigue [Recovering/Resolving]
  - Dry mouth [Recovering/Resolving]
  - Feeling jittery [Recovered/Resolved]

NARRATIVE: CASE EVENT DATE: 2014
